FAERS Safety Report 11390833 (Version 1)
Quarter: 2015Q3

REPORT INFORMATION
  Report Type: Spontaneous
  Country: GB (occurrence: None)
  Receive Date: 20150813
  Receipt Date: 20150813
  Transmission Date: 20151125
  Serious: Yes (Other)
  Sender: FDA-Public Use
  Company Number: 2015RR-101484

PATIENT
  Age: 71 Year
  Sex: Female
  Weight: 59 kg

DRUGS (3)
  1. MAGNESIUM [Concomitant]
     Active Substance: MAGNESIUM
  2. COENZYME Q10 [Concomitant]
     Active Substance: UBIDECARENONE
  3. SIMVASTATIN (SIMVASTATIN) UNKNOWN, UNKNOWN [Suspect]
     Active Substance: SIMVASTATIN
     Indication: MYOCARDIAL INFARCTION
     Route: 048
     Dates: start: 20110215, end: 20110315

REACTIONS (7)
  - Withdrawal syndrome [None]
  - Sucrose intolerance [None]
  - Muscle tightness [None]
  - Weight decreased [None]
  - Dyspepsia [None]
  - Abnormal loss of weight [None]
  - Irritable bowel syndrome [None]

NARRATIVE: CASE EVENT DATE: 20110215
